FAERS Safety Report 25867695 (Version 1)
Quarter: 2025Q4

REPORT INFORMATION
  Report Type: Spontaneous
  Country: US (occurrence: US)
  Receive Date: 20251001
  Receipt Date: 20251001
  Transmission Date: 20260119
  Serious: Yes (Hospitalization)
  Sender: ROCHE
  Company Number: US-ROCHE-10000396761

PATIENT
  Age: 76 Year
  Sex: Female

DRUGS (4)
  1. ITOVEBI [Suspect]
     Active Substance: INAVOLISIB
     Indication: Product used for unknown indication
     Route: 065
  2. IBRANCE [Suspect]
     Active Substance: PALBOCICLIB
     Indication: Product used for unknown indication
     Dosage: TAKE 1 TABLET DAILY ON DAYS 1 THROUGH 21 EVERY 28 DAYS
     Route: 065
  3. PIQRAY [Concomitant]
     Active Substance: ALPELISIB
  4. TRUQAP [Concomitant]
     Active Substance: CAPIVASERTIB

REACTIONS (2)
  - Dry eye [Recovering/Resolving]
  - Diarrhoea [Recovering/Resolving]
